FAERS Safety Report 5831520-0 (Version None)
Quarter: 2008Q3

REPORT INFORMATION
  Report Type: 
  Country: None (occurrence: None)
  Receive Date: 20080801
  Receipt Date: 20080724
  Transmission Date: 20090109
  Serious: Yes (Hospitalization)
  Sender: FDA-Public Use
  Company Number: GB-MERCK-0807GBR00113

PATIENT
  Sex: Male

DRUGS (7)
  1. DECADRON SRC [Suspect]
     Indication: MULTIPLE MYELOMA
     Route: 065
  2. BORTEZOMIB [Suspect]
     Indication: MULTIPLE MYELOMA
     Route: 065
     Dates: start: 20080422
  3. ASPIRIN [Concomitant]
     Indication: ATRIAL FIBRILLATION
     Route: 065
  4. DILTIAZEM HYDROCHLORIDE [Concomitant]
     Indication: ATRIAL FIBRILLATION
     Route: 065
  5. GABAPENTIN [Concomitant]
     Indication: NEURALGIA
     Route: 065
  6. ROSUVASTATIN CALCIUM [Concomitant]
     Indication: BLOOD CHOLESTEROL INCREASED
     Route: 065
  7. LEVOTHYROXINE SODIUM [Concomitant]
     Route: 065

REACTIONS (1)
  - PNEUMONIA [None]
